FAERS Safety Report 6204395-8 (Version None)
Quarter: 2009Q2

REPORT INFORMATION
  Report Type: 
  Country: None (occurrence: None)
  Receive Date: 20090521
  Receipt Date: 20090508
  Transmission Date: 20091009
  Serious: Yes (Hospitalization)
  Sender: FDA-Public Use
  Company Number: 20090164 /

PATIENT
  Age: 76 Year
  Sex: Female

DRUGS (13)
  1. VENOFER [Suspect]
     Dosage: 266MG/DAY INTRAVENOUS
     Route: 042
     Dates: start: 20090202, end: 20090310
  2. CALCIUM SUPPLEMENT [Concomitant]
  3. CORTEF [Concomitant]
  4. DIOVAN [Concomitant]
  5. FENTANYL (FENTANYL (BUCCAL)) [Concomitant]
  6. NITROQUICK (NITROGLYCERIN) [Concomitant]
  7. OXYCODONE HCL [Concomitant]
  8. OXYCONTIN [Concomitant]
  9. PROTONIX  (PANTOPRAXOLE SODIUM) [Concomitant]
  10. MIRALAX [Concomitant]
  11. ACULAR LS (EYE DROPS) (KETOROLAC TROMETHAMINE) [Concomitant]
  12. PRED FORTE (EYE DROPS) (PREDNISOLONE ACETATE) [Concomitant]
  13. SENOKOT (SENNOSIDES) [Concomitant]

REACTIONS (6)
  - BLOOD PRESSURE INCREASED [None]
  - CARDIOMEGALY [None]
  - EMPHYSEMA [None]
  - NO THERAPEUTIC RESPONSE [None]
  - TRANSIENT ISCHAEMIC ATTACK [None]
  - TREATMENT NONCOMPLIANCE [None]
